FAERS Safety Report 11396102 (Version 3)
Quarter: 2020Q1

REPORT INFORMATION
  Report Type: Spontaneous
  Country: US (occurrence: US)
  Receive Date: 20150819
  Receipt Date: 20200302
  Transmission Date: 20200409
  Serious: Yes (Hospitalization, Other)
  Sender: FDA-Public Use
  Company Number: US-JNJFOC-20150805077

PATIENT
  Age: 34 Year
  Sex: Female

DRUGS (2)
  1. XARELTO [Suspect]
     Active Substance: RIVAROXABAN
     Indication: DEEP VEIN THROMBOSIS
     Dosage: 15 MG AND 20 MG
     Route: 048
     Dates: start: 20140126, end: 201402
  2. XARELTO [Suspect]
     Active Substance: RIVAROXABAN
     Indication: PULMONARY EMBOLISM
     Dosage: 15 MG AND 20 MG
     Route: 048
     Dates: start: 201402, end: 20140905

REACTIONS (3)
  - Product dose omission [Unknown]
  - Gastrointestinal haemorrhage [Unknown]
  - Uterine haemorrhage [Recovered/Resolved]

NARRATIVE: CASE EVENT DATE: 201401
